FAERS Safety Report 13293398 (Version 2)
Quarter: 2017Q2

REPORT INFORMATION
  Report Type: Spontaneous
  Country: US (occurrence: US)
  Receive Date: 20170303
  Receipt Date: 20170412
  Transmission Date: 20170830
  Serious: No
  Sender: FDA-Public Use
  Company Number: US-JNJFOC-20170123585

PATIENT
  Age: 88 Year
  Sex: Male

DRUGS (3)
  1. XARELTO [Suspect]
     Active Substance: RIVAROXABAN
     Indication: PRODUCT USED FOR UNKNOWN INDICATION
     Route: 048
     Dates: start: 20161201
  2. CEFDINIR. [Concomitant]
     Active Substance: CEFDINIR
     Indication: RENAL CANCER
     Dosage: 20 COUNT
     Route: 065
     Dates: start: 20170102
  3. NITROFURANTOIN. [Concomitant]
     Active Substance: NITROFURANTOIN
     Dosage: 20 COUNT
     Route: 065
     Dates: start: 20170217

REACTIONS (4)
  - Chromaturia [Unknown]
  - Blood urine present [Recovered/Resolved]
  - Back pain [Unknown]
  - Adverse event [Unknown]

NARRATIVE: CASE EVENT DATE: 20170123
